FAERS Safety Report 7605933-0 (Version None)
Quarter: 2011Q3

REPORT INFORMATION
  Report Type: 
  Country: None (occurrence: None)
  Receive Date: 20110713
  Receipt Date: 20110629
  Transmission Date: 20111222
  Serious: Yes (Other)
  Sender: FDA-Public Use
  Company Number: PHFR2011GB02549

PATIENT
  Sex: Female

DRUGS (1)
  1. CLOZAPINE [Suspect]
     Route: 048
     Dates: start: 20091214

REACTIONS (5)
  - NEUTROPENIA [None]
  - FLUID INTAKE REDUCED [None]
  - WHITE BLOOD CELL COUNT DECREASED [None]
  - MYOCARDIAL INFARCTION [None]
  - DECREASED APPETITE [None]
